FAERS Safety Report 7105083-6 (Version None)
Quarter: 2010Q4

REPORT INFORMATION
  Report Type: 
  Country: None (occurrence: None)
  Receive Date: 20101116
  Receipt Date: 20101109
  Transmission Date: 20110411
  Serious: Yes (Death)
  Sender: FDA-Public Use
  Company Number: DE-BAXTER-2010BH027913

PATIENT
  Sex: Female

DRUGS (1)
  1. TISSUCOL/TISSEEL KIT STIM3 [Suspect]
     Indication: FACE LIFT
     Route: 065
     Dates: start: 20080101, end: 20080101

REACTIONS (1)
  - PULMONARY EMBOLISM [None]
